FAERS Safety Report 18923883 (Version 5)
Quarter: 2021Q2

REPORT INFORMATION
  Report Type: Spontaneous
  Country: BR (occurrence: BR)
  Receive Date: 20210222
  Receipt Date: 20210608
  Transmission Date: 20210717
  Serious: Yes (Other)
  Sender: FDA-Public Use
  Company Number: BR-TAKEDA-2021TUS003867

PATIENT

DRUGS (1)
  1. VENVANSE [Suspect]
     Active Substance: LISDEXAMFETAMINE DIMESYLATE
     Indication: PRODUCT USED FOR UNKNOWN INDICATION
     Dosage: UNK
     Route: 055

REACTIONS (17)
  - Suicidal ideation [Unknown]
  - Feelings of worthlessness [Unknown]
  - Chest pain [Unknown]
  - Overdose [Unknown]
  - Depression [Unknown]
  - Fatigue [Unknown]
  - Food interaction [Unknown]
  - Drug abuse [Unknown]
  - Chills [Unknown]
  - Gait disturbance [Unknown]
  - Incorrect route of product administration [Unknown]
  - Euphoric mood [Unknown]
  - Hyperreflexia [Unknown]
  - Agitation [Unknown]
  - Thinking abnormal [Unknown]
  - Drug ineffective [Unknown]
  - Pain [Unknown]
